FAERS Safety Report 9420386 (Version 1)
Quarter: 2013Q3

REPORT INFORMATION
  Report Type: Spontaneous
  Country: US (occurrence: US)
  Receive Date: 20130725
  Receipt Date: 20130725
  Transmission Date: 20140515
  Serious: No
  Sender: FDA-Public Use
  Company Number: US-ABBOTT-13P-163-1065055-00

PATIENT
  Sex: Female

DRUGS (2)
  1. SYNTHROID [Suspect]
     Indication: HYPOTHYROIDISM
  2. SYNTHROID [Suspect]
     Dosage: ONE PER DAY PLUS TWO TABLETS ON SUNDAY

REACTIONS (6)
  - Weight fluctuation [Unknown]
  - Blood thyroid stimulating hormone increased [Unknown]
  - Mood swings [Unknown]
  - Listless [Unknown]
  - Asthenia [Unknown]
  - Fatigue [Unknown]
